FAERS Safety Report 19275725 (Version 2)
Quarter: 2021Q2

REPORT INFORMATION
  Report Type: Spontaneous
  Country: CL (occurrence: CL)
  Receive Date: 20210519
  Receipt Date: 20210525
  Transmission Date: 20210717
  Serious: Yes (Hospitalization, Disabling, Other)
  Sender: FDA-Public Use
  Company Number: CL-BIOMARINAP-CL-2021-136606

PATIENT
  Age: 15 Year
  Sex: Male

DRUGS (1)
  1. VIMIZIM [Suspect]
     Active Substance: ELOSULFASE ALFA
     Indication: MUCOPOLYSACCHARIDOSIS IV
     Dosage: UNK
     Route: 042
     Dates: start: 20150417

REACTIONS (8)
  - Paraparesis [Not Recovered/Not Resolved]
  - Pain [Not Recovered/Not Resolved]
  - Quadriparesis [Not Recovered/Not Resolved]
  - Pain in extremity [Not Recovered/Not Resolved]
  - Spinal cord compression [Not Recovered/Not Resolved]
  - Fall [Not Recovered/Not Resolved]
  - Physical disability [Not Recovered/Not Resolved]
  - Spinal cord injury cervical [Not Recovered/Not Resolved]

NARRATIVE: CASE EVENT DATE: 202001
